FAERS Safety Report 20036227 (Version 2)
Quarter: 2021Q4

REPORT INFORMATION
  Report Type: Spontaneous
  Country: JP (occurrence: JP)
  Receive Date: 20211105
  Receipt Date: 20211215
  Transmission Date: 20220303
  Serious: Yes (Death, Other)
  Sender: FDA-Public Use
  Company Number: JP-SAKK-2021SA361421AA

PATIENT
  Age: 68 Year
  Sex: Male

DRUGS (3)
  1. DOCETAXEL [Suspect]
     Active Substance: DOCETAXEL
     Indication: Hypopharyngeal cancer stage IV
     Dosage: 60 MG/M2 ON DAY1
     Route: 041
  2. CISPLATIN [Concomitant]
     Active Substance: CISPLATIN
     Indication: Hypopharyngeal cancer stage IV
     Dosage: 60 MG/M2 ON DAY1
     Route: 065
  3. FLUOROURACIL [Concomitant]
     Active Substance: FLUOROURACIL
     Indication: Hypopharyngeal cancer stage IV
     Dosage: 600 MG/M2 FROM DAY 1 TO DAY 5
     Route: 065

REACTIONS (5)
  - Intestinal ischaemia [Fatal]
  - Diarrhoea [Fatal]
  - Abdominal pain [Fatal]
  - Blood pressure decreased [Fatal]
  - Depressed level of consciousness [Fatal]
